FAERS Safety Report 9870841 (Version 2)
Quarter: 2014Q1

REPORT INFORMATION
  Report Type: Spontaneous
  Country: IT (occurrence: None)
  Receive Date: 20140203
  Receipt Date: 20140226
  Transmission Date: 20141002
  Serious: Yes (Hospitalization)
  Sender: FDA-Public Use
  Company Number: 2014AP000945

PATIENT
  Age: 79 Year
  Sex: Male

DRUGS (3)
  1. LEVOFLOXACIN (LEVOFLOXACIN) [Suspect]
     Indication: BRONCHITIS
     Route: 048
     Dates: start: 20131113, end: 20131119
  2. CIPROFLOXACIN (CIPROFLOXACIN) [Suspect]
     Indication: BRONCHITIS
     Route: 048
     Dates: start: 20131107, end: 20131112
  3. HYDROCHLOROTHIAZIDE\VALSARTAN [Suspect]
     Indication: HYPERTENSION
     Route: 048

REACTIONS (3)
  - Renal failure acute [None]
  - Urinary retention [None]
  - Haemodialysis [None]
